FAERS Safety Report 13561044 (Version 1)
Quarter: 2017Q2

REPORT INFORMATION
  Report Type: Spontaneous
  Country: US (occurrence: US)
  Receive Date: 20170518
  Receipt Date: 20170518
  Transmission Date: 20170830
  Serious: Yes (Hospitalization)
  Sender: FDA-Public Use
  Company Number: US-ROCHE-1393728

PATIENT
  Age: 28 Year
  Sex: Male

DRUGS (1)
  1. NAPROXEN. [Suspect]
     Active Substance: NAPROXEN
     Indication: PRODUCT USED FOR UNKNOWN INDICATION
     Dosage: APPROXIMATELY 320 TABLETS OF NAPROXEN 220 MG (70.4 G) WITH AN UNKNOWN QUANTITY OF ALCOHOL 90 MIN BEF
     Route: 048

REACTIONS (6)
  - Somnolence [Unknown]
  - Metabolic acidosis [Recovering/Resolving]
  - Overdose [Unknown]
  - Lethargy [Unknown]
  - Hypotension [Unknown]
  - Generalised tonic-clonic seizure [Unknown]
